FAERS Safety Report 4323636-5 (Version None)
Quarter: 2004Q1

REPORT INFORMATION
  Report Type: 
  Country: None (occurrence: None)
  Receive Date: 20040323
  Receipt Date: 20040305
  Transmission Date: 20041129
  Serious: Yes (Hospitalization)
  Sender: FDA-Public Use
  Company Number: 2004AP00262

PATIENT
  Age: 69 Year
  Sex: Male

DRUGS (12)
  1. ZOLADEX [Suspect]
     Indication: PROSTATE CANCER
     Dosage: 10.8 MG Q3MO SQ
     Route: 058
     Dates: start: 20031217
  2. PROSTAL [Concomitant]
  3. ITOROL [Concomitant]
  4. BLOPRESS [Concomitant]
  5. LAXOBERON [Concomitant]
  6. PURSENNID [Concomitant]
  7. LASIX [Concomitant]
  8. NORVASC [Concomitant]
  9. CARDENALIN [Concomitant]
  10. CALCIUM CARBONATE [Concomitant]
  11. BASEN [Concomitant]
  12. PENFILL R [Concomitant]

REACTIONS (6)
  - ALANINE AMINOTRANSFERASE INCREASED [None]
  - ASPARTATE AMINOTRANSFERASE INCREASED [None]
  - DUODENAL ULCER [None]
  - HEPATIC FUNCTION ABNORMAL [None]
  - JAUNDICE [None]
  - NASOPHARYNGITIS [None]
